FAERS Safety Report 7012420-X (Version None)
Quarter: 2010Q3

REPORT INFORMATION
  Report Type: 
  Country: None (occurrence: None)
  Receive Date: 20100924
  Receipt Date: 20100917
  Transmission Date: 20110219
  Serious: Yes (Hospitalization)
  Sender: FDA-Public Use
  Company Number: IE-JNJFOC-20100906410

PATIENT
  Sex: Female
  Weight: 78 kg

DRUGS (3)
  1. HALOPERIDOL [Suspect]
     Indication: PSYCHOTIC DISORDER
     Route: 065
  2. ARIPIPRAZOLE [Suspect]
     Indication: PSYCHOTIC DISORDER
     Route: 065
  3. GENOTROPIN [Concomitant]
     Indication: PRODUCT USED FOR UNKNOWN INDICATION
     Route: 065

REACTIONS (2)
  - PSYCHOTIC DISORDER [None]
  - TREATMENT NONCOMPLIANCE [None]
